FAERS Safety Report 17743948 (Version 1)
Quarter: 2020Q2

REPORT INFORMATION
  Report Type: Spontaneous
  Country: FR (occurrence: FR)
  Receive Date: 20200505
  Receipt Date: 20200505
  Transmission Date: 20200714
  Serious: Yes (Other)
  Sender: FDA-Public Use
  Company Number: FR-ASTRAZENECA-2020SE58099

PATIENT
  Age: 27544 Day
  Sex: Male
  Weight: 78 kg

DRUGS (4)
  1. BISOPROLOL [Concomitant]
     Active Substance: BISOPROLOL
     Indication: ACUTE CORONARY SYNDROME
     Dosage: 1.25 AT ONE DAILY
     Route: 065
     Dates: start: 20200303
  2. ASPEGIC [Concomitant]
     Indication: ACUTE CORONARY SYNDROME
     Dosage: 100 AT ONE DAILY
     Route: 065
     Dates: start: 20200303
  3. ATORVASTATIN [Concomitant]
     Active Substance: ATORVASTATIN
     Indication: ACUTE CORONARY SYNDROME
     Dosage: 40 AT ONE DAILY
     Route: 065
     Dates: start: 20200303
  4. BRILIQUE [Suspect]
     Active Substance: TICAGRELOR
     Indication: ACUTE CORONARY SYNDROME
     Dates: start: 20200303, end: 20200318

REACTIONS (1)
  - Sleep apnoea syndrome [Unknown]

NARRATIVE: CASE EVENT DATE: 20200315
